FAERS Safety Report 23812548 (Version 1)
Quarter: 2024Q2

REPORT INFORMATION
  Report Type: Spontaneous
  Country: US (occurrence: US)
  Receive Date: 20240503
  Receipt Date: 20240503
  Transmission Date: 20240716
  Serious: Yes (Disabling)
  Sender: FDA-Public Use
  Company Number: US-TEVA-VS-3188908

PATIENT

DRUGS (1)
  1. DOCETAXEL [Suspect]
     Active Substance: DOCETAXEL\DOCETAXEL ANHYDROUS
     Indication: Product used for unknown indication
     Dosage: FIRST DATE AND LAST DATE OF USE: APPROXIMATELY 2012-11-01 THROUGH 2013-04-30
     Route: 065

REACTIONS (1)
  - Lacrimation increased [Unknown]
